FAERS Safety Report 24948973 (Version 1)
Quarter: 2025Q1

REPORT INFORMATION
  Report Type: Spontaneous
  Country: US (occurrence: None)
  Receive Date: 20250208
  Receipt Date: 20250208
  Transmission Date: 20250408
  Serious: Yes (Hospitalization)
  Sender: FDA-CTU
  Company Number: None

PATIENT
  Age: 77 Year
  Sex: Female
  Weight: 93.6 kg

DRUGS (20)
  1. ZEPBOUND [Suspect]
     Active Substance: TIRZEPATIDE
     Indication: Obesity
     Route: 030
     Dates: start: 20250205, end: 20250205
  2. raloxifene (EVISTA) [Concomitant]
  3. ZOFRAN [Concomitant]
     Active Substance: ONDANSETRON HYDROCHLORIDE
  4. lisinopril-hydroCHLOROthiazide (prinzide;zestoretic) [Concomitant]
  5. rousvastatin (CRESTOR) [Concomitant]
  6. SYNTHROID [Concomitant]
     Active Substance: LEVOTHYROXINE SODIUM
  7. liothyronine (CYTOMEL) [Concomitant]
  8. MOBIC [Concomitant]
     Active Substance: MELOXICAM
  9. oxyBUTYnin (DITROPAN XL) [Concomitant]
  10. nystatin (MYCOSTATIN) [Concomitant]
  11. MOBIC [Concomitant]
     Active Substance: MELOXICAM
  12. oxyBUTYnin (DITROPAN XL) [Concomitant]
  13. nystatin (MYCOSTATIN) [Concomitant]
  14. calcium carb-cholecalciferol [Concomitant]
  15. traMADol (ULTRAM) [Concomitant]
  16. Multiple Vitamins-Minerals (PRESERVISION AREDS 2) CHEW [Concomitant]
  17. SELENIUM [Concomitant]
     Active Substance: SELENIUM
  18. BRAZIL NUTS [Concomitant]
  19. OMEGA-3 FATTY ACIDS (OMEGA-3 PO) [Concomitant]
  20. DICLOFENAC SODIUM (VOLTAREN) [Concomitant]

REACTIONS (1)
  - Influenza like illness [None]

NARRATIVE: CASE EVENT DATE: 20250205
